FAERS Safety Report 23564673 (Version 2)
Quarter: 2024Q1

REPORT INFORMATION
  Report Type: Report from Study
  Country: SI (occurrence: SI)
  Receive Date: 20240226
  Receipt Date: 20240325
  Transmission Date: 20240410
  Serious: Yes (Other)
  Sender: FDA-Public Use
  Company Number: SI-BAYER-2024A011797

PATIENT
  Age: 38 Year
  Sex: Female
  Weight: 57 kg

DRUGS (1)
  1. KYLEENA [Suspect]
     Active Substance: LEVONORGESTREL
     Indication: Contraception
     Dosage: 17.5?G/DAY
     Route: 015
     Dates: start: 20221110, end: 20221110

REACTIONS (4)
  - Embedded device [Recovered/Resolved]
  - Device placement issue [None]
  - Complication of device insertion [None]
  - Uterine spasm [Recovered/Resolved]

NARRATIVE: CASE EVENT DATE: 20221110
